FAERS Safety Report 10433946 (Version 1)
Quarter: 2014Q3

REPORT INFORMATION
  Report Type: Spontaneous
  Country: CH (occurrence: CH)
  Receive Date: 20140905
  Receipt Date: 20140905
  Transmission Date: 20150326
  Serious: Yes (Other)
  Sender: FDA-Public Use
  Company Number: CH-SA-2014SA118592

PATIENT
  Age: 71 Year
  Sex: Female
  Weight: 83 kg

DRUGS (13)
  1. XGEVA [Concomitant]
     Active Substance: DENOSUMAB
     Route: 058
  2. BECOZYM [Concomitant]
     Active Substance: VITAMINS
     Route: 048
  3. XARELTO [Concomitant]
     Active Substance: RIVAROXABAN
     Route: 048
  4. TEMESTA [Concomitant]
     Active Substance: LORAZEPAM
     Route: 048
  5. OPTIDERM [Concomitant]
     Route: 058
  6. TARCEVA [Suspect]
     Active Substance: ERLOTINIB HYDROCHLORIDE
     Indication: NON-SMALL CELL LUNG CANCER STAGE IV
     Route: 048
     Dates: start: 2013
  7. CALCIMAGON-D3 [Concomitant]
     Active Substance: CALCIUM\CHOLECALCIFEROL
     Route: 048
  8. PLAVIX [Suspect]
     Active Substance: CLOPIDOGREL BISULFATE
     Indication: EMBOLISM ARTERIAL
     Route: 048
  9. SUPRADYN /ARG/ [Concomitant]
     Route: 048
  10. ATARAX [Concomitant]
     Active Substance: HYDROXYZINE\HYDROXYZINE HYDROCHLORIDE
     Route: 048
  11. CONCOR [Concomitant]
     Active Substance: BISOPROLOL FUMARATE
     Route: 048
  12. TOREM [Concomitant]
     Active Substance: TORSEMIDE
     Route: 048
  13. METFORMIN [Concomitant]
     Active Substance: METFORMIN HYDROCHLORIDE
     Route: 048

REACTIONS (2)
  - Hepatitis [Not Recovered/Not Resolved]
  - Hepatic fibrosis [Not Recovered/Not Resolved]

NARRATIVE: CASE EVENT DATE: 2014
